FAERS Safety Report 6149087-9 (Version None)
Quarter: 2009Q2

REPORT INFORMATION
  Report Type: 
  Country: None (occurrence: None)
  Receive Date: 20090407
  Receipt Date: 20090323
  Transmission Date: 20091009
  Serious: Yes (Disabling)
  Sender: FDA-Public Use
  Company Number: 2009S1004030

PATIENT
  Age: 48 Year
  Sex: Male

DRUGS (4)
  1. INDOMETHACIN [Suspect]
     Indication: ARTHRALGIA
     Dosage: 50 MG;Q8H;ORAL
     Route: 048
     Dates: start: 20090111, end: 20090113
  2. INDOMETHACIN [Suspect]
     Indication: CHONDROCALCINOSIS PYROPHOSPHATE
     Dosage: 50 MG;Q8H;ORAL
     Route: 048
     Dates: start: 20090111, end: 20090113
  3. INDOMETHACIN [Suspect]
     Indication: JOINT SWELLING
     Dosage: 50 MG;Q8H;ORAL
     Route: 048
     Dates: start: 20090111, end: 20090113
  4. VITAMIN B-12 [Concomitant]

REACTIONS (9)
  - DIZZINESS [None]
  - EAR DISCOMFORT [None]
  - FEELING ABNORMAL [None]
  - HEADACHE [None]
  - HYPERSENSITIVITY [None]
  - IMPAIRED WORK ABILITY [None]
  - NERVE INJURY [None]
  - TINNITUS [None]
  - VERTIGO [None]
